FAERS Safety Report 4808229-5 (Version None)
Quarter: 2005Q4

REPORT INFORMATION
  Report Type: 
  Country: None (occurrence: None)
  Receive Date: 20051021
  Receipt Date: 20051018
  Transmission Date: 20060501
  Serious: Yes (Death, Hospitalization)
  Sender: FDA-Public Use
  Company Number: 12676

PATIENT
  Age: 7 Year
  Sex: Female

DRUGS (3)
  1. VINCRISTINE [Suspect]
     Indication: ACUTE LYMPHOCYTIC LEUKAEMIA RECURRENT
     Dosage: 1.5 MG IT
     Route: 037
  2. METHOTREXATE [Concomitant]
  3. CYTOSINE ARABINOSIDE [Concomitant]

REACTIONS (17)
  - AREFLEXIA [None]
  - CONFUSIONAL STATE [None]
  - CONSCIOUSNESS FLUCTUATING [None]
  - CONVULSION [None]
  - DRUG ADMINISTRATION ERROR [None]
  - ENCEPHALOPATHY [None]
  - EXTENSOR PLANTAR RESPONSE [None]
  - EYE MOVEMENT DISORDER [None]
  - HICCUPS [None]
  - INAPPROPRIATE ANTIDIURETIC HORMONE SECRETION [None]
  - INCORRECT ROUTE OF DRUG ADMINISTRATION [None]
  - LOSS OF CONSCIOUSNESS [None]
  - NYSTAGMUS [None]
  - PARALYSIS FLACCID [None]
  - RESPIRATORY FAILURE [None]
  - SOMNOLENCE [None]
  - URINARY RETENTION [None]
